FAERS Safety Report 8777201 (Version 2)
Quarter: 2013Q4

REPORT INFORMATION
  Report Type: Spontaneous
  Country: US (occurrence: US)
  Receive Date: 20120911
  Receipt Date: 20131105
  Transmission Date: 20140711
  Serious: Yes (Other)
  Sender: FDA-Public Use
  Company Number: US-009507513-1010USA01859

PATIENT
  Age: 37 Year
  Sex: Female

DRUGS (4)
  1. ISENTRESS [Suspect]
     Indication: HIV INFECTION
     Dosage: 800 MG, QD
     Route: 048
  2. KALETRA [Suspect]
     Indication: HIV INFECTION
     Dosage: 4 DF, QD
     Route: 048
  3. BARACLUDE [Suspect]
     Indication: HIV INFECTION
     Dosage: 1 MG, QD
     Route: 048
  4. EPZICOM [Suspect]
     Indication: HIV INFECTION
     Dosage: 1 DF, QD
     Route: 048

REACTIONS (2)
  - Abortion induced [Unknown]
  - Exposure during pregnancy [Recovered/Resolved]
